FAERS Safety Report 10227486 (Version 1)
Quarter: 2014Q2

REPORT INFORMATION
  Report Type: Spontaneous
  Country: US (occurrence: US)
  Receive Date: 20140610
  Receipt Date: 20140610
  Transmission Date: 20141212
  Serious: No
  Sender: FDA-Public Use
  Company Number: US-VIIV HEALTHCARE LIMITED-A1062116A

PATIENT
  Age: 61 Year
  Sex: Male

DRUGS (2)
  1. TIVICAY [Suspect]
     Indication: HIV INFECTION
     Route: 048
     Dates: start: 20140202, end: 20140205
  2. NO CONCURRENT MEDICATION [Concomitant]

REACTIONS (3)
  - Swollen tongue [Unknown]
  - Dyspnoea [Unknown]
  - Nausea [Unknown]
